FAERS Safety Report 5899098-3 (Version None)
Quarter: 2008Q3

REPORT INFORMATION
  Report Type: 
  Country: None (occurrence: None)
  Receive Date: 20080925
  Receipt Date: 20080915
  Transmission Date: 20090109
  Serious: Yes (Death)
  Sender: FDA-Public Use
  Company Number: GB-ELI_LILLY_AND_COMPANY-GB200809003411

PATIENT
  Sex: Male

DRUGS (2)
  1. ZYPREXA [Suspect]
  2. FLUPENTIXOL [Concomitant]

REACTIONS (3)
  - ASTHENIA [None]
  - DYSTONIA [None]
  - EPILEPSY [None]
